FAERS Safety Report 9888392 (Version 1)
Quarter: 2014Q1

REPORT INFORMATION
  Report Type: Spontaneous
  Country: US (occurrence: US)
  Receive Date: 20140211
  Receipt Date: 20140211
  Transmission Date: 20141002
  Serious: No
  Sender: FDA-Public Use
  Company Number: US-PFIZER INC-2014038622

PATIENT
  Age: 47 Year
  Sex: Female
  Weight: 81.63 kg

DRUGS (2)
  1. LYRICA [Suspect]
     Indication: FIBROMYALGIA
     Dosage: 200 MG, 3X/DAY
     Dates: end: 20140208
  2. RISPERIDONE [Concomitant]
     Indication: BIPOLAR DISORDER
     Dosage: 4 MG, DAILY

REACTIONS (1)
  - Malaise [Not Recovered/Not Resolved]
